FAERS Safety Report 12994986 (Version 1)
Quarter: 2016Q4

REPORT INFORMATION
  Report Type: Report from Study
  Country: BE (occurrence: BE)
  Receive Date: 20161202
  Receipt Date: 20161202
  Transmission Date: 20170207
  Serious: Yes (Other)
  Sender: FDA-Public Use
  Company Number: BE-SAOL THERAPEUTICS-2016SAO01153

PATIENT

DRUGS (2)
  1. LIORESAL [Suspect]
     Active Substance: BACLOFEN
     Indication: PARAPLEGIA
     Dosage: 62.95 ?G, \DAY
     Route: 037
     Dates: end: 20160115
  2. LIORESAL [Suspect]
     Active Substance: BACLOFEN
     Dosage: 70 ?G, \DAY
     Route: 037
     Dates: start: 20160115

REACTIONS (2)
  - Therapy non-responder [Recovered/Resolved]
  - Muscle spasms [Recovered/Resolved]

NARRATIVE: CASE EVENT DATE: 20151227
